FAERS Safety Report 23009788 (Version 3)
Quarter: 2024Q3

REPORT INFORMATION
  Report Type: Spontaneous
  Country: PL (occurrence: PL)
  Receive Date: 20230929
  Receipt Date: 20240930
  Transmission Date: 20241016
  Serious: Yes (Other)
  Sender: VERTEX
  Company Number: PL-VERTEX PHARMACEUTICALS-2023-014331

PATIENT

DRUGS (4)
  1. ELEXACAFTOR\IVACAFTOR\TEZACAFTOR [Suspect]
     Active Substance: ELEXACAFTOR\IVACAFTOR\TEZACAFTOR
     Indication: Cystic fibrosis
     Dosage: UNK
     Route: 048
     Dates: start: 202209
  2. ELEXACAFTOR\IVACAFTOR\TEZACAFTOR [Suspect]
     Active Substance: ELEXACAFTOR\IVACAFTOR\TEZACAFTOR
     Dosage: 3 TABLETS A DAY
     Route: 048
  3. KALYDECO [Suspect]
     Active Substance: IVACAFTOR
     Indication: Cystic fibrosis
     Dosage: UNK FREQ
     Route: 048
     Dates: start: 202209
  4. KALYDECO [Suspect]
     Active Substance: IVACAFTOR
     Dosage: 3 TABS A DAY
     Route: 048

REACTIONS (12)
  - Haemoptysis [Not Recovered/Not Resolved]
  - Asthenia [Unknown]
  - Skin lesion [Unknown]
  - Bronchopulmonary aspergillosis allergic [Unknown]
  - Pyrexia [Not Recovered/Not Resolved]
  - Illness [Unknown]
  - Sweat test abnormal [Unknown]
  - Infection [Unknown]
  - Cough [Unknown]
  - Increased viscosity of bronchial secretion [Not Recovered/Not Resolved]
  - Drug ineffective [Unknown]
  - Hepatic enzyme increased [Unknown]

NARRATIVE: CASE EVENT DATE: 20230501
